FAERS Safety Report 7910192-5 (Version None)
Quarter: 2011Q4

REPORT INFORMATION
  Report Type: 
  Country: None (occurrence: None)
  Receive Date: 20111111
  Receipt Date: 20111102
  Transmission Date: 20120403
  Serious: Yes (Hospitalization)
  Sender: FDA-Public Use
  Company Number: FR-EISAI INC-E7389-01708-CLI-FR

PATIENT
  Sex: Female
  Weight: 52 kg

DRUGS (2)
  1. EPIRUBICIN HYDROCHLORIDE [Suspect]
     Indication: BREAST CANCER
     Route: 041
     Dates: start: 20110928
  2. SODIUM CHLORIDE [Concomitant]

REACTIONS (4)
  - MUCOSAL INFLAMMATION [None]
  - DEHYDRATION [None]
  - DECREASED APPETITE [None]
  - NEUTROPENIA [None]
